FAERS Safety Report 10596156 (Version 3)
Quarter: 2015Q1

REPORT INFORMATION
  Report Type: Report from Study
  Country: US (occurrence: US)
  Receive Date: 20141120
  Receipt Date: 20150107
  Transmission Date: 20150720
  Serious: Yes (Other)
  Sender: FDA-Public Use
  Company Number: US-ABBVIE-14P-163-1309222-00

PATIENT
  Sex: Female
  Weight: 56.75 kg

DRUGS (3)
  1. HUMIRA [Suspect]
     Active Substance: ADALIMUMAB
     Route: 058
     Dates: start: 2012
  2. HUMIRA [Suspect]
     Active Substance: ADALIMUMAB
     Route: 058
     Dates: start: 2008, end: 201008
  3. HUMIRA [Suspect]
     Active Substance: ADALIMUMAB
     Indication: RHEUMATOID ARTHRITIS
     Dosage: EVERY OTHER TO EVERY WEEK AT VARIOUS TIMES
     Route: 058
     Dates: start: 2003, end: 2006

REACTIONS (10)
  - Arthralgia [Not Recovered/Not Resolved]
  - Staphylococcal infection [Recovered/Resolved with Sequelae]
  - Connective tissue disorder [Unknown]
  - Cartilage injury [Not Recovered/Not Resolved]
  - Loss of consciousness [Recovered/Resolved]
  - Disturbance in attention [Unknown]
  - Glomus tumour [Not Recovered/Not Resolved]
  - Haemarthrosis [Recovered/Resolved]
  - Synovial disorder [Not Recovered/Not Resolved]
  - Bacterial disease carrier [Not Recovered/Not Resolved]

NARRATIVE: CASE EVENT DATE: 2006
